FAERS Safety Report 5177041-2 (Version None)
Quarter: 2006Q4

REPORT INFORMATION
  Report Type: 
  Country: None (occurrence: None)
  Receive Date: 20061218
  Receipt Date: 20061116
  Transmission Date: 20070319
  Serious: Yes (Other)
  Sender: FDA-Public Use
  Company Number: AU-GLAXOSMITHKLINE-B0447113A

PATIENT
  Age: 66 Year
  Sex: Male
  Weight: 69.2 kg

DRUGS (11)
  1. AVANDIA [Suspect]
     Dosage: 4MG PER DAY
     Route: 048
     Dates: start: 20060301, end: 20060720
  2. DIAMICRON [Concomitant]
     Dosage: 120MG IN THE MORNING
     Route: 048
     Dates: end: 20060722
  3. METFORMIN [Concomitant]
     Dosage: 1G TWICE PER DAY
     Route: 048
  4. METOPROLOL SUCCINATE [Concomitant]
     Dosage: 100MG TWICE PER DAY
     Route: 048
  5. MONODUR [Concomitant]
     Dosage: 240MG IN THE MORNING
     Route: 048
  6. LISINOPRIL [Concomitant]
     Dosage: 20MG IN THE MORNING
     Route: 048
  7. ASPIRIN [Concomitant]
     Dosage: 100MG IN THE MORNING
     Route: 048
  8. ADALAT [Concomitant]
     Dosage: 30MG AT NIGHT
     Route: 048
  9. LIPITOR [Concomitant]
     Dosage: 160MG AT NIGHT
     Route: 048
  10. FUROSEMIDE [Concomitant]
     Dosage: 20MG ALTERNATE DAYS
     Route: 048
  11. NITROLINGUAL [Concomitant]
     Route: 048

REACTIONS (7)
  - ACUTE PULMONARY OEDEMA [None]
  - COUGH [None]
  - DYSPNOEA [None]
  - JOINT SWELLING [None]
  - MIDDLE INSOMNIA [None]
  - STENT PLACEMENT [None]
  - WEIGHT INCREASED [None]
